FAERS Safety Report 8373976-8 (Version None)
Quarter: 2012Q2

REPORT INFORMATION
  Report Type: 
  Country: None (occurrence: None)
  Receive Date: 20120521
  Receipt Date: 20120511
  Transmission Date: 20120825
  Serious: Yes (Other)
  Sender: FDA-Public Use
  Company Number: GB-TEVA-337458ISR

PATIENT
  Age: 32 Year
  Sex: Female
  Weight: 55 kg

DRUGS (3)
  1. AMOXICILLIN [Concomitant]
     Dates: start: 20120210, end: 20120217
  2. YASMIN [Concomitant]
     Dates: start: 20120210, end: 20120413
  3. DOXYCYCLINE [Suspect]

REACTIONS (1)
  - ALOPECIA [None]
